FAERS Safety Report 8559342-0 (Version None)
Quarter: 2012Q3

REPORT INFORMATION
  Report Type: 
  Country: None (occurrence: None)
  Receive Date: 20120802
  Receipt Date: 20120720
  Transmission Date: 20120928
  Serious: Yes (Hospitalization, Disabling, Other)
  Sender: FDA-Public Use
  Company Number: US-009507513-1203USA03480

PATIENT

DRUGS (8)
  1. ADVAIR [Concomitant]
     Indication: ASTHMA
     Dates: start: 20010101
  2. SPIRIVA [Concomitant]
     Indication: ASTHMA
     Dates: start: 20010101
  3. THEOPHYLLINE [Concomitant]
     Indication: ASTHMA
     Dates: start: 20010101
  4. ATROVENT [Concomitant]
     Indication: ASTHMA
     Dates: start: 20010101
  5. FOSAMAX [Suspect]
     Dosage: 70 MG, QW
     Route: 048
     Dates: start: 20090323, end: 20100308
  6. ALBUTEROL [Concomitant]
     Indication: ASTHMA
     Dates: start: 20010101
  7. FOSAMAX [Suspect]
     Indication: OSTEOPOROSIS
     Dosage: 70 MG, UNK
     Route: 048
     Dates: start: 20010101, end: 20080121
  8. FOSAMAX [Suspect]
     Dosage: 70 MG, UNK
     Route: 048
     Dates: start: 20080218, end: 20100308

REACTIONS (63)
  - BLOOD CHOLESTEROL INCREASED [None]
  - ANXIETY [None]
  - JOINT DISLOCATION [None]
  - AORTIC ANEURYSM [None]
  - PLEURAL EFFUSION [None]
  - VOCAL CORD THICKENING [None]
  - SPINAL OSTEOARTHRITIS [None]
  - OSTEOPOROSIS [None]
  - ROAD TRAFFIC ACCIDENT [None]
  - LACERATION [None]
  - BLINDNESS TRANSIENT [None]
  - CHRONIC OBSTRUCTIVE PULMONARY DISEASE [None]
  - EMPHYSEMA [None]
  - FALL [None]
  - CONSTIPATION [None]
  - ABDOMINAL PAIN UPPER [None]
  - HYPONATRAEMIA [None]
  - BRONCHITIS CHRONIC [None]
  - LARYNGITIS [None]
  - TRICUSPID VALVE INCOMPETENCE [None]
  - LUNG NEOPLASM [None]
  - LUMBAR SPINAL STENOSIS [None]
  - SQUAMOUS CELL CARCINOMA OF SKIN [None]
  - HYPOXIA [None]
  - HYPERTENSION [None]
  - DECREASED APPETITE [None]
  - SPINAL COMPRESSION FRACTURE [None]
  - KYPHOSIS [None]
  - FEMUR FRACTURE [None]
  - HIP FRACTURE [None]
  - LOW TURNOVER OSTEOPATHY [None]
  - PALPITATIONS [None]
  - OSTEOPENIA [None]
  - MACULAR DEGENERATION [None]
  - CORNEAL DYSTROPHY [None]
  - INSOMNIA [None]
  - CAROTID ARTERY STENOSIS [None]
  - INTERVERTEBRAL DISC DEGENERATION [None]
  - SPINAL FRACTURE [None]
  - SQUAMOUS CELL CARCINOMA [None]
  - RIB FRACTURE [None]
  - MUSCULOSKELETAL STIFFNESS [None]
  - OSTEOARTHRITIS [None]
  - JOINT EFFUSION [None]
  - HEADACHE [None]
  - OSTEONECROSIS [None]
  - HEAD INJURY [None]
  - SUPRAVENTRICULAR TACHYCARDIA [None]
  - LIGAMENT SPRAIN [None]
  - CATARACT [None]
  - CONJUNCTIVITIS [None]
  - HEPATIC STEATOSIS [None]
  - SPONDYLOLISTHESIS [None]
  - BACK PAIN [None]
  - OEDEMA PERIPHERAL [None]
  - STRESS FRACTURE [None]
  - DIZZINESS [None]
  - DEPRESSION [None]
  - WEIGHT DECREASED [None]
  - SPINAL COLUMN STENOSIS [None]
  - HAEMATOMA [None]
  - SPINAL DISORDER [None]
  - NAUSEA [None]
